FAERS Safety Report 4672842-9 (Version None)
Quarter: 2005Q2

REPORT INFORMATION
  Report Type: 
  Country: None (occurrence: None)
  Receive Date: 20050523
  Receipt Date: 20050518
  Transmission Date: 20051028
  Serious: Yes (Life-Threatening)
  Sender: FDA-Public Use
  Company Number: 212553

PATIENT
  Age: 16 Year
  Sex: Female

DRUGS (1)
  1. NUTROPIN AQ [Suspect]
     Indication: GROWTH HORMONE DEFICIENCY
     Dosage: 3 MG QD SUBCUTANEOUS
     Route: 058
     Dates: start: 20040616, end: 20040722

REACTIONS (4)
  - BONE DISORDER [None]
  - BONE SARCOMA [None]
  - FALL [None]
  - GAIT DISTURBANCE [None]
